FAERS Safety Report 9791593 (Version 3)
Quarter: 2014Q1

REPORT INFORMATION
  Report Type: Report from Study
  Country: US (occurrence: US)
  Receive Date: 20140102
  Receipt Date: 20140310
  Transmission Date: 20141002
  Serious: Yes (Hospitalization)
  Sender: FDA-Public Use
  Company Number: US-ROCHE-1328162

PATIENT
  Age: 54 Year
  Sex: Female

DRUGS (1)
  1. NUTROPIN [Suspect]
     Indication: GROWTH HORMONE DEFICIENCY
     Route: 058
     Dates: end: 201403

REACTIONS (3)
  - Upper respiratory tract infection [Unknown]
  - Nuclear magnetic resonance imaging brain abnormal [Not Recovered/Not Resolved]
  - Drug dose omission [Unknown]
